FAERS Safety Report 9074167 (Version 1)
Quarter: 2013Q1

REPORT INFORMATION
  Report Type: Report from Study
  Country: US (occurrence: US)
  Receive Date: 20130128
  Receipt Date: 20130128
  Transmission Date: 20140127
  Serious: No
  Sender: FDA-Public Use
  Company Number: US-ABBOTT-12P-163-0916264-00

PATIENT
  Age: 48 Year
  Sex: Female

DRUGS (7)
  1. HUMIRA 40 MG/0.8 ML PEN [Suspect]
     Indication: PSORIASIS
     Dates: start: 201112
  2. DEXILANT [Concomitant]
     Indication: PRODUCT USED FOR UNKNOWN INDICATION
     Dosage: DAILY
  3. ZYRTEC [Concomitant]
     Indication: SEASONAL ALLERGY
  4. ALBUTEROL [Concomitant]
     Indication: ASTHMA
  5. TYLENOL [Concomitant]
     Indication: PAIN
  6. METHOTREXATE [Concomitant]
     Indication: PRODUCT USED FOR UNKNOWN INDICATION
  7. NORPLANT SYSTEM [Concomitant]
     Indication: CONTRACEPTION
     Dates: start: 1991

REACTIONS (3)
  - Drug ineffective [Not Recovered/Not Resolved]
  - Psoriasis [Unknown]
  - Pain [Unknown]
